FAERS Safety Report 25892193 (Version 1)
Quarter: 2025Q4

REPORT INFORMATION
  Report Type: Spontaneous
  Country: PR (occurrence: None)
  Receive Date: 20251006
  Receipt Date: 20251006
  Transmission Date: 20260118
  Serious: No
  Sender: FDA-CTU
  Company Number: None

PATIENT
  Age: 68 Year
  Sex: Female
  Weight: 104.33 kg

DRUGS (5)
  1. CORTICOTROPIN [Suspect]
     Active Substance: CORTICOTROPIN
     Indication: Multiple sclerosis
     Dosage: FREQUENCY : DAILY;?
     Dates: start: 20250906, end: 20250916
  2. Baclofen Oral Tablet 10 MG-- [Concomitant]
  3. Losartan Potassium-HCTZ Oral Tablet 100-25 MG-- [Concomitant]
  4. Cataflam Oral Tablet 50 MG-- [Concomitant]
  5. fluorometholone 0.01 %-- [Concomitant]

REACTIONS (10)
  - Face oedema [None]
  - Oedema peripheral [None]
  - Multiple sclerosis [None]
  - Temperature intolerance [None]
  - Arthralgia [None]
  - Myalgia [None]
  - Memory impairment [None]
  - Urinary incontinence [None]
  - Neuropathy peripheral [None]
  - Optic neuritis [None]
